FAERS Safety Report 8979951 (Version 4)
Quarter: 2016Q3

REPORT INFORMATION
  Report Type: Spontaneous
  Country: US (occurrence: US)
  Receive Date: 20121221
  Receipt Date: 20160825
  Transmission Date: 20161109
  Serious: Yes (Hospitalization, Other)
  Sender: FDA-Public Use
  Company Number: US-009507513-1212USA007832

PATIENT
  Sex: Female
  Weight: 57.6 kg

DRUGS (8)
  1. FOSAMAX [Suspect]
     Active Substance: ALENDRONATE SODIUM
     Indication: OSTEOPOROSIS
     Dosage: UNK
     Route: 048
     Dates: start: 200301, end: 201008
  2. FOSAMAX [Suspect]
     Active Substance: ALENDRONATE SODIUM
     Dosage: UNK, QD
     Route: 048
     Dates: start: 1999, end: 2000
  3. FOSAMAX [Suspect]
     Active Substance: ALENDRONATE SODIUM
     Dosage: 70 MG, UNK
     Route: 048
     Dates: start: 200601, end: 200712
  4. HORMONES (UNSPECIFIED) [Concomitant]
     Active Substance: UNSPECIFIED INGREDIENT
     Indication: PRODUCT USED FOR UNKNOWN INDICATION
     Dosage: UNK
     Route: 065
     Dates: start: 1992
  5. FOSAMAX PLUS D [Suspect]
     Active Substance: ALENDRONATE SODIUM\CHOLECALCIFEROL
     Dosage: 70 MG, QW
     Route: 048
     Dates: start: 2001, end: 201002
  6. FOSAMAX PLUS D [Suspect]
     Active Substance: ALENDRONATE SODIUM\CHOLECALCIFEROL
     Indication: OSTEOPOROSIS
     Dosage: UNK, QD
     Route: 048
     Dates: start: 1999, end: 2000
  7. ALENDRONATE SODIUM. [Suspect]
     Active Substance: ALENDRONATE SODIUM
     Indication: OSTEOPOROSIS
     Dosage: 70 MG, UNK
     Route: 048
     Dates: start: 200902, end: 200912
  8. SYNTHROID [Concomitant]
     Active Substance: LEVOTHYROXINE SODIUM
     Indication: HYPOTHYROIDISM
     Dosage: UNK, UNKNOWN
     Route: 065
     Dates: start: 1992

REACTIONS (35)
  - Haemoglobin decreased [Unknown]
  - Foot operation [Unknown]
  - Vitamin D decreased [Unknown]
  - Left ventricular dysfunction [Unknown]
  - Gastrooesophageal reflux disease [Unknown]
  - Jaw fracture [Unknown]
  - Nephrolithiasis [Unknown]
  - Blood cholesterol increased [Unknown]
  - Tricuspid valve incompetence [Unknown]
  - Muscle spasms [Unknown]
  - Foot fracture [Unknown]
  - Bone loss [Unknown]
  - Thyroid cancer [Unknown]
  - Peptic ulcer [Unknown]
  - Infection [Unknown]
  - Left ventricular dysfunction [Unknown]
  - Myocardial infarction [Recovered/Resolved]
  - Femur fracture [Recovered/Resolved with Sequelae]
  - Ventricular hypokinesia [Unknown]
  - Femur fracture [Recovered/Resolved]
  - Nephrolithiasis [Unknown]
  - Limb asymmetry [Unknown]
  - Hypertension [Unknown]
  - Diverticulum [Unknown]
  - Gastritis [Unknown]
  - Pain [Unknown]
  - Muscle spasms [Unknown]
  - Escherichia urinary tract infection [Unknown]
  - Nephrolithiasis [Unknown]
  - Hypotension [Recovered/Resolved]
  - Gastric ulcer haemorrhage [Unknown]
  - Depression [Unknown]
  - Hand deformity [Unknown]
  - Tooth disorder [Recovered/Resolved]
  - Anaemia postoperative [Unknown]

NARRATIVE: CASE EVENT DATE: 199911
